FAERS Safety Report 21585844 (Version 2)
Quarter: 2023Q1

REPORT INFORMATION
  Report Type: Report from Study
  Country: US (occurrence: US)
  Receive Date: 20221111
  Receipt Date: 20230317
  Transmission Date: 20230417
  Serious: No
  Sender: FDA-Public Use
  Company Number: US-ALLERGAN-2236766US

PATIENT
  Sex: Female

DRUGS (14)
  1. ATOGEPANT [Suspect]
     Active Substance: ATOGEPANT
     Indication: Migraine
     Dosage: 30 MG, QD
     Dates: start: 202210
  2. UBRELVY [Concomitant]
     Active Substance: UBROGEPANT
     Indication: Migraine
     Dosage: AS NEEDED
     Dates: start: 202210
  3. SPIRONOLACTONE [Concomitant]
     Active Substance: SPIRONOLACTONE
     Indication: Hair growth abnormal
     Dosage: 50 MG
     Route: 048
  4. PANTOPRAZOLE [Concomitant]
     Active Substance: PANTOPRAZOLE
     Indication: Gastrooesophageal reflux disease
     Dosage: 40 MG
     Route: 048
  5. ESTRADIOL [Concomitant]
     Active Substance: ESTRADIOL
     Indication: Hormone replacement therapy
     Dosage: 1 MG
     Route: 048
  6. PROGESTERONE [Concomitant]
     Active Substance: PROGESTERONE
     Dosage: 200 MG, DAILY
     Route: 048
  7. CETIRIZINE [Concomitant]
     Active Substance: CETIRIZINE HYDROCHLORIDE
     Indication: Seasonal allergy
     Dosage: 10 MG,DAILY
     Route: 048
  8. FISH OIL [Concomitant]
     Active Substance: FISH OIL
     Dosage: 1000 MG, DAILY
  9. VITAMIN D NOS [Concomitant]
     Active Substance: VITAMIN D NOS
     Dosage: 250 IU, DAILY
  10. .ALPHA.-TOCOPHEROL [Concomitant]
     Active Substance: .ALPHA.-TOCOPHEROL
     Dosage: VITAMIN E 800, DAILY
  11. MAGNESIUM [Concomitant]
     Active Substance: MAGNESIUM
     Dosage: 800 MG, DAILY
  12. POTASSIUM CITRATE [Concomitant]
     Active Substance: POTASSIUM CITRATE
  13. OXYBUTYNIN [Concomitant]
     Active Substance: OXYBUTYNIN
  14. MESALAMINE [Concomitant]
     Active Substance: MESALAMINE
     Dosage: 4000 MG, DAILY

REACTIONS (2)
  - Hepatic steatosis [Unknown]
  - Hepatic fibrosis marker increased [Unknown]
